FAERS Safety Report 8061871-3 (Version None)
Quarter: 2012Q1

REPORT INFORMATION
  Report Type: 
  Country: None (occurrence: None)
  Receive Date: 20120117
  Receipt Date: 20120110
  Transmission Date: 20120608
  Serious: Yes (Death)
  Sender: FDA-Public Use
  Company Number: 1000027001

PATIENT
  Age: 36 Year
  Sex: Male

DRUGS (5)
  1. AMLODIPINE [Suspect]
  2. ETHANOL (ETHANOL) [Suspect]
  3. PROPRANOLOL HYDROCHLORIDE [Suspect]
  4. COCAINE (COCAINE) [Suspect]
  5. ACETAMINOPHEN [Suspect]

REACTIONS (1)
  - COMPLETED SUICIDE [None]
